FAERS Safety Report 9513576 (Version 1)
Quarter: 2013Q3

REPORT INFORMATION
  Report Type: Report from Study
  Country: US (occurrence: US)
  Receive Date: 20130910
  Receipt Date: 20130910
  Transmission Date: 20140515
  Serious: Yes (Other)
  Sender: FDA-Public Use
  Company Number: US-GLAXOSMITHKLINE-A1028170A

PATIENT
  Sex: Female

DRUGS (3)
  1. ADVAIR [Suspect]
     Indication: CHRONIC OBSTRUCTIVE PULMONARY DISEASE
     Route: 065
  2. ALBUTEROL [Suspect]
     Indication: CHRONIC OBSTRUCTIVE PULMONARY DISEASE
     Route: 065
  3. UNSPECIFIED INHALER [Suspect]
     Indication: PRODUCT USED FOR UNKNOWN INDICATION
     Route: 065

REACTIONS (14)
  - Myocardial infarction [Unknown]
  - Cerebrovascular accident [Unknown]
  - Cervical vertebral fracture [Unknown]
  - Fibromyalgia [Unknown]
  - Hypotension [Unknown]
  - Somnolence [Unknown]
  - Blood pressure fluctuation [Unknown]
  - Pain [Unknown]
  - Surgery [Unknown]
  - Chronic obstructive pulmonary disease [Unknown]
  - Peripheral arterial occlusive disease [Unknown]
  - Intervertebral disc disorder [Unknown]
  - Migraine [Unknown]
  - Arthritis [Unknown]
